FAERS Safety Report 10648680 (Version 2)
Quarter: 2014Q4

REPORT INFORMATION
  Report Type: Spontaneous
  Country: DE (occurrence: DE)
  Receive Date: 20141212
  Receipt Date: 20141212
  Transmission Date: 20150529
  Serious: Yes (Death)
  Sender: FDA-Public Use
  Company Number: DE-TEVA-513378ISR

PATIENT
  Sex: Female

DRUGS (3)
  1. TAXANES [Suspect]
     Active Substance: UNSPECIFIED INGREDIENT
     Indication: SQUAMOUS CELL CARCINOMA OF THE CERVIX
  2. AVASTIN [Concomitant]
     Active Substance: BEVACIZUMAB
     Indication: SQUAMOUS CELL CARCINOMA OF THE CERVIX
  3. CISPLATIN. [Concomitant]
     Active Substance: CISPLATIN
     Indication: SQUAMOUS CELL CARCINOMA OF THE CERVIX

REACTIONS (3)
  - Drug resistance [Not Recovered/Not Resolved]
  - Death [Fatal]
  - Death of relative [None]
